FAERS Safety Report 17584072 (Version 1)
Quarter: 2020Q1

REPORT INFORMATION
  Report Type: Spontaneous
  Country: DE (occurrence: DE)
  Receive Date: 20200326
  Receipt Date: 20200326
  Transmission Date: 20200409
  Serious: Yes (Hospitalization)
  Sender: FDA-Public Use
  Company Number: DE-ALKEM LABORATORIES LIMITED-DE-ALKEM-2020-00764

PATIENT
  Age: 13 Year
  Sex: Female
  Weight: 103 kg

DRUGS (2)
  1. FUCIDINE [Concomitant]
     Indication: PRURITUS
     Dosage: UNK
     Route: 065
  2. CEFUROXIME AXETIL. [Suspect]
     Active Substance: CEFUROXIME AXETIL
     Indication: WOUND INFECTION
     Dosage: 500 MILLIGRAM 1 TOTAL
     Route: 048
     Dates: start: 20191123

REACTIONS (2)
  - Dyspnoea [Recovered/Resolved]
  - Tachycardia [Recovered/Resolved]

NARRATIVE: CASE EVENT DATE: 20191123
